FAERS Safety Report 10051846 (Version 2)
Quarter: 2014Q2

REPORT INFORMATION
  Report Type: Spontaneous
  Country: US (occurrence: US)
  Receive Date: 20140402
  Receipt Date: 20140414
  Transmission Date: 20141212
  Serious: Yes (Other)
  Sender: FDA-Public Use
  Company Number: US-ROCHE-1371795

PATIENT
  Age: 23 Year
  Sex: Female
  Weight: 97.2 kg

DRUGS (8)
  1. CELLCEPT [Suspect]
     Indication: LUPUS NEPHRITIS
     Route: 065
     Dates: start: 20130408
  2. METFORMIN HYDROCHLORIDE [Suspect]
     Indication: TYPE 2 DIABETES MELLITUS
     Route: 065
  3. BENLYSTA [Suspect]
     Indication: SYSTEMIC LUPUS ERYTHEMATOSUS
     Dosage: VARIABLE DOSES (BETWEEN 913 MG AND 940 MG). LAST DOSE PRIOR TO SAE 23/DEC/2013
     Route: 042
     Dates: start: 20130918
  4. PREDNISONE [Suspect]
     Indication: SYSTEMIC LUPUS ERYTHEMATOSUS
     Route: 048
     Dates: start: 20130306
  5. PREDNISONE [Suspect]
     Indication: INFLAMMATION
     Dosage: TAPER
     Route: 048
     Dates: start: 20131230
  6. PLAQUENIL [Concomitant]
     Route: 065
     Dates: start: 20130321
  7. HYDROXYCHLOROQUINE SULPHATE [Concomitant]
     Route: 065
     Dates: start: 20130321
  8. LOSARTAN POTASSIUM [Concomitant]
     Dosage: SINCE AN UNKNOWN DATE DURING PREGNANCY
     Route: 048

REACTIONS (3)
  - Abortion spontaneous [Unknown]
  - Uterine dilation and curettage [Recovered/Resolved]
  - Exposure during pregnancy [Unknown]
